FAERS Safety Report 24595873 (Version 4)
Quarter: 2024Q4

REPORT INFORMATION
  Report Type: Spontaneous
  Country: CA (occurrence: CA)
  Receive Date: 20241109
  Receipt Date: 20241228
  Transmission Date: 20250115
  Serious: Yes (Other)
  Sender: CELLTRION
  Company Number: CA-PFIZER INC-202400084331

PATIENT

DRUGS (7)
  1. INFLECTRA [Suspect]
     Active Substance: INFLIXIMAB-DYYB
     Indication: Colitis ulcerative
     Dosage: 800 MG, INDUCTION 0, 2, 6 THEN MAINTENANCE EVERY 8 WEEKS, WEEK 0 IN HOSPITAL (06APR2024) STOPPED
     Route: 042
     Dates: start: 20240406
  2. INFLECTRA [Suspect]
     Active Substance: INFLIXIMAB-DYYB
     Dosage: 800 MG, INDUCTION 0, 2, 6 THEN MAINTENANCE EVERY 8 WEEKS, (WEEK 2)
     Route: 042
     Dates: start: 20240418
  3. INFLECTRA [Suspect]
     Active Substance: INFLIXIMAB-DYYB
     Dosage: 800 MG, INDUCTION 0, 2, 6 THEN MAINTENANCE EVERY 8 WEEKS, (WEEK 6)
     Route: 042
     Dates: start: 20240515
  4. INFLECTRA [Suspect]
     Active Substance: INFLIXIMAB-DYYB
     Dosage: 800 MG, EVERY 8 WEEKS (AFTER 8 WEEKS 2 DAYS)
     Route: 042
     Dates: start: 20240712
  5. INFLECTRA [Suspect]
     Active Substance: INFLIXIMAB-DYYB
     Dosage: 800 MG, EVERY 8 WEEKS (TOOK AFTER 7 WEEKS AND 6 DAYS)
     Route: 042
     Dates: start: 20240905
  6. INFLECTRA [Suspect]
     Active Substance: INFLIXIMAB-DYYB
     Dosage: 800 MG, EVERY 8 WEEKS INDUCTION WEEK 2, 6 THEN MAINTENANCE EVERY 8 WEEKS. WEEK 0 IN HOSPITAL STOPPED
     Route: 042
     Dates: start: 20241031, end: 20241031
  7. INFLECTRA [Suspect]
     Active Substance: INFLIXIMAB-DYYB
     Dosage: 1000 MG, 7 WEEKS (REINDUCTION) (REINDUCTION W0,2,6)
     Route: 042
     Dates: start: 20241219

REACTIONS (6)
  - Condition aggravated [Recovering/Resolving]
  - Drug specific antibody present [Unknown]
  - Off label use [Unknown]
  - Off label use [Unknown]
  - Intentional product use issue [Unknown]
  - Off label use [Unknown]

NARRATIVE: CASE EVENT DATE: 20240101
